FAERS Safety Report 21735902 (Version 2)
Quarter: 2023Q1

REPORT INFORMATION
  Report Type: Spontaneous
  Country: US (occurrence: US)
  Receive Date: 20221215
  Receipt Date: 20230113
  Transmission Date: 20230418
  Serious: Yes (Hospitalization)
  Sender: FDA-Public Use
  Company Number: US-Vifor (International) Inc.-VIT-2022-08619

PATIENT
  Age: 74 Year
  Sex: Male

DRUGS (5)
  1. VELTASSA [Suspect]
     Active Substance: PATIROMER
     Indication: Hyperkalaemia
     Dosage: DISSOLVE CONTENTS OF 1 PACKET INTO 1/3 CUP OF WATER AND DRINK FULL AMOUNT ONCE DAILY AS DIRECTED
     Route: 048
     Dates: start: 20170407
  2. ISOSORBIDE MONONITRATE [Concomitant]
     Active Substance: ISOSORBIDE MONONITRATE
     Dosage: ER
  3. JANUVIA [Concomitant]
     Active Substance: SITAGLIPTIN PHOSPHATE
  4. VITAMIN D3 [Concomitant]
     Active Substance: CHOLECALCIFEROL
     Dosage: 5000 UNIT
  5. ATORVASTATIN [Concomitant]
     Active Substance: ATORVASTATIN

REACTIONS (2)
  - Hospitalisation [Not Recovered/Not Resolved]
  - Product dose omission issue [Unknown]
